FAERS Safety Report 11108243 (Version 1)
Quarter: 2015Q2

REPORT INFORMATION
  Report Type: Report from Study
  Country: FR (occurrence: FR)
  Receive Date: 20150512
  Receipt Date: 20150512
  Transmission Date: 20150821
  Serious: Yes (Hospitalization, Other)
  Sender: FDA-Public Use
  Company Number: FR-EMD SERONO-7244315

PATIENT
  Age: 51 Year
  Sex: Female
  Weight: 70 kg

DRUGS (6)
  1. METHYLPREDNISOLONE. [Concomitant]
     Active Substance: METHYLPREDNISOLONE
     Indication: PYREXIA
     Route: 042
     Dates: start: 20130927
  2. MEK INHIBITOR (MSC1936369B) [Suspect]
     Active Substance: PIMASERTIB HYDROCHLORIDE
     Indication: METASTATIC MALIGNANT MELANOMA
     Route: 048
     Dates: start: 20130906, end: 20130925
  3. FUNGIZONE [Concomitant]
     Active Substance: AMPHOTERICIN B
     Indication: DERMATITIS ACNEIFORM
     Route: 048
     Dates: start: 20130926
  4. OFLOXACIN. [Concomitant]
     Active Substance: OFLOXACIN
     Indication: ANTIBIOTIC THERAPY
     Dosage: 200 MG/40ML
     Route: 042
     Dates: start: 20131014
  5. DACARBAZINE. [Suspect]
     Active Substance: DACARBAZINE
     Indication: METASTATIC MALIGNANT MELANOMA
     Route: 042
     Dates: start: 20130722, end: 20130722
  6. DACARBAZINE. [Suspect]
     Active Substance: DACARBAZINE
     Route: 042
     Dates: start: 20130812, end: 20130812

REACTIONS (2)
  - Anaemia [Not Recovered/Not Resolved]
  - Small intestinal obstruction [Not Recovered/Not Resolved]

NARRATIVE: CASE EVENT DATE: 20131012
